FAERS Safety Report 9539457 (Version 1)
Quarter: 2013Q3

REPORT INFORMATION
  Report Type: Spontaneous
  Country: US (occurrence: None)
  Receive Date: 20130916
  Receipt Date: 20130916
  Transmission Date: 20140515
  Serious: Yes (Other)
  Sender: FDA-Public Use
  Company Number: 5497E AE # 1502

PATIENT
  Age: 31 Year
  Sex: Male
  Weight: 92.99 kg

DRUGS (2)
  1. HYLAND^S CALMS FORTE TABLETS [Suspect]
     Indication: STRESS
     Dosage: 49 TABLETS INGESTED
  2. HYLAND^S CALMS FORTE TABLETS [Suspect]
     Indication: SLEEP DISORDER
     Dosage: 49 TABLETS INGESTED

REACTIONS (2)
  - Retching [None]
  - Incorrect dose administered [None]
